FAERS Safety Report 19581448 (Version 4)
Quarter: 2021Q4

REPORT INFORMATION
  Report Type: Report from Study
  Country: CH (occurrence: CH)
  Receive Date: 20210720
  Receipt Date: 20211111
  Transmission Date: 20220304
  Serious: Yes (Hospitalization)
  Sender: FDA-Public Use
  Company Number: CH-ABBVIE-21K-151-3975467-00

PATIENT
  Age: 68 Year
  Sex: Female

DRUGS (4)
  1. CARBIDOPA\LEVODOPA [Suspect]
     Active Substance: CARBIDOPA\LEVODOPA
     Indication: Parkinson^s disease
     Route: 050
     Dates: start: 20190121
  2. CARBIDOPA\LEVODOPA [Suspect]
     Active Substance: CARBIDOPA\LEVODOPA
     Dosage: MD: 6 ML, CRD: 4 ML/H, CRN: 4 ML/H, ED: 1 ML?24 H THERAPY
     Route: 050
     Dates: start: 20210317, end: 20210623
  3. CARBIDOPA\LEVODOPA [Suspect]
     Active Substance: CARBIDOPA\LEVODOPA
     Dosage: MD: 6 ML, CRD: 4 ML/H, CRN: 4 ML/H, ED: 1 ML
     Route: 050
     Dates: start: 20210623
  4. BENSERAZIDE HYDROCHLORIDE\LEVODOPA [Concomitant]
     Active Substance: BENSERAZIDE HYDROCHLORIDE\LEVODOPA
     Indication: Product used for unknown indication

REACTIONS (9)
  - Device leakage [Recovered/Resolved]
  - Device occlusion [Recovered/Resolved]
  - Hypersomnia [Not Recovered/Not Resolved]
  - Mobility decreased [Not Recovered/Not Resolved]
  - Hallucination [Recovering/Resolving]
  - Device physical property issue [Recovered/Resolved]
  - Device programming error [Recovered/Resolved]
  - Device issue [Recovered/Resolved]
  - Akinesia [Recovering/Resolving]

NARRATIVE: CASE EVENT DATE: 20210715
